FAERS Safety Report 6089236-4 (Version None)
Quarter: 2009Q1

REPORT INFORMATION
  Report Type: 
  Country: None (occurrence: None)
  Receive Date: 20090224
  Receipt Date: 20070531
  Transmission Date: 20090719
  Serious: Yes (Hospitalization)
  Sender: FDA-Public Use
  Company Number: FR-PFIZER INC-2009161112

PATIENT

DRUGS (3)
  1. EPIRUBICIN HCL [Suspect]
     Indication: GASTRIC CANCER
     Dosage: 50 MG/M2, CYCLIC
     Route: 042
     Dates: start: 20060407
  2. CISPLATIN [Suspect]
     Indication: GASTRIC CANCER
     Dosage: 60 MG/M2, CYCLIC
     Route: 042
     Dates: start: 20060407
  3. CAPECITABINE [Suspect]
     Indication: GASTRIC CANCER
     Dosage: 2000 MG/M2, CYCLIC
     Route: 048
     Dates: start: 20060408, end: 20060421

REACTIONS (1)
  - ASTHENIA [None]
